FAERS Safety Report 5831991-X (Version None)
Quarter: 2008Q3

REPORT INFORMATION
  Report Type: 
  Country: None (occurrence: None)
  Receive Date: 20080804
  Receipt Date: 20080725
  Transmission Date: 20090109
  Serious: Yes (Other)
  Sender: FDA-Public Use
  Company Number: CA-AMGEN-QUU297617

PATIENT
  Age: 12 Year
  Sex: Male

DRUGS (4)
  1. KINERET [Suspect]
     Indication: DRUG USE FOR UNKNOWN INDICATION
     Route: 058
  2. INDOMETHACIN [Concomitant]
  3. METHOTREXATE [Concomitant]
  4. PREDNISONE [Concomitant]

REACTIONS (4)
  - ARTHRITIS BACTERIAL [None]
  - CELLULITIS [None]
  - PHARYNGITIS [None]
  - SEPSIS [None]
